FAERS Safety Report 6653958-4 (Version None)
Quarter: 2010Q1

REPORT INFORMATION
  Report Type: 
  Country: None (occurrence: None)
  Receive Date: 20100326
  Receipt Date: 20100316
  Transmission Date: 20100710
  Serious: Yes (Other)
  Sender: FDA-Public Use
  Company Number: US-JNJFOC-20100306258

PATIENT
  Age: 59 Year
  Sex: Female
  Weight: 45.81 kg

DRUGS (4)
  1. TYLENOL [Suspect]
     Indication: SPINAL COLUMN STENOSIS
     Dosage: 2 PILLS AT NIGHT AND 1 LATER DAILY, FOR FIVE YEARS
     Route: 048
  2. TYLENOL [Suspect]
     Indication: OSTEOARTHRITIS
     Dosage: 2 PILLS AT NIGHT AND 1 LATER DAILY, FOR FIVE YEARS
     Route: 048
  3. QUESTRAN [Concomitant]
     Indication: CROHN'S DISEASE
  4. VALIUM [Concomitant]
     Indication: MUSCLE SPASMS

REACTIONS (1)
  - OSTEOPOROSIS [None]
